FAERS Safety Report 21033580 (Version 1)
Quarter: 2022Q3

REPORT INFORMATION
  Report Type: Spontaneous
  Country: US (occurrence: US)
  Receive Date: 20220701
  Receipt Date: 20220701
  Transmission Date: 20221027
  Serious: Yes (Other)
  Sender: FDA-Public Use
  Company Number: US-PFIZER INC-PV202200012995

PATIENT
  Age: 61 Year
  Sex: Male

DRUGS (2)
  1. TAFAMIDIS [Suspect]
     Active Substance: TAFAMIDIS
     Indication: Cardiac amyloidosis
     Dosage: 61 MG
  2. TAFAMIDIS [Suspect]
     Active Substance: TAFAMIDIS
     Indication: Cardiac failure chronic

REACTIONS (3)
  - Cardiac amyloidosis [Unknown]
  - Disease progression [Unknown]
  - Pulmonary amyloidosis [Unknown]
